FAERS Safety Report 16569653 (Version 2)
Quarter: 2021Q4

REPORT INFORMATION
  Report Type: Spontaneous
  Country: ES (occurrence: ES)
  Receive Date: 20190715
  Receipt Date: 20211012
  Transmission Date: 20220303
  Serious: Yes (Other)
  Sender: FDA-Public Use
  Company Number: ES-AEMPS-507091

PATIENT
  Age: 51 Year
  Sex: Female

DRUGS (3)
  1. LEVETIRACETAM [Suspect]
     Active Substance: LEVETIRACETAM
     Indication: Brain operation
     Dosage: UNK
     Route: 065
     Dates: start: 20190309, end: 20190319
  2. MEROPENEM [Suspect]
     Active Substance: MEROPENEM
     Indication: Meningitis
     Dosage: 1 GRAM, 8 HOUR, 1 GR/8H
     Route: 042
     Dates: start: 20190311, end: 20190319
  3. SULFAMETHOXAZOLE\TRIMETHOPRIM [Suspect]
     Active Substance: SULFAMETHOXAZOLE\TRIMETHOPRIM
     Indication: Meningitis
     Dosage: 1 DOSAGE FORM, 1U CADA 12 HORAS
     Route: 048
     Dates: start: 20190309, end: 20190312

REACTIONS (1)
  - Mixed liver injury [Recovered/Resolved]

NARRATIVE: CASE EVENT DATE: 20190313
